FAERS Safety Report 5132189-3 (Version None)
Quarter: 2006Q4

REPORT INFORMATION
  Report Type: 
  Country: None (occurrence: None)
  Receive Date: 20061017
  Receipt Date: 20061006
  Transmission Date: 20070319
  Serious: Yes (Other)
  Sender: FDA-Public Use
  Company Number: US-2005-026853

PATIENT
  Age: 48 Year
  Sex: Female
  Weight: 68 kg

DRUGS (7)
  1. CLIMARA [Suspect]
     Indication: MENOPAUSAL SYMPTOMS
     Dosage: 0.1 MG/D, CONT, TRANSDERMAL
     Route: 062
     Dates: start: 20000101, end: 20040101
  2. ESTRADIOL [Suspect]
     Indication: MENOPAUSAL SYMPTOMS
     Dosage: 0.05 AND 0.01 MG
     Dates: start: 20000101, end: 20040101
  3. OGEN [Suspect]
     Indication: MENOPAUSAL SYMPTOMS
     Dosage: 1.25 MG
     Dates: start: 19990101, end: 20000101
  4. PROTONIX [Concomitant]
  5. ALLEGRA [Concomitant]
  6. ZYRTEC [Concomitant]
  7. LIQUIBID-D (PHENYLEPHRINE HYDROCHLORIDE, GUAIFENESIN) [Concomitant]

REACTIONS (5)
  - BREAST CANCER FEMALE [None]
  - BREAST CANCER IN SITU [None]
  - HYPERTENSION [None]
  - OESTROGEN RECEPTOR ASSAY POSITIVE [None]
  - PROGESTERONE RECEPTOR ASSAY POSITIVE [None]
